FAERS Safety Report 6891993-1 (Version None)
Quarter: 2010Q3

REPORT INFORMATION
  Report Type: 
  Country: None (occurrence: None)
  Receive Date: 20100731
  Receipt Date: 20071211
  Transmission Date: 20110219
  Serious: No
  Sender: FDA-Public Use
  Company Number: US-PFIZER INC-2007075926

PATIENT
  Sex: Female
  Weight: 53.2 kg

DRUGS (5)
  1. NORVASC [Suspect]
     Indication: HYPERTENSION
     Route: 048
     Dates: start: 20000101
  2. COZAAR [Interacting]
     Indication: HYPERTENSION
  3. SYNTHROID [Concomitant]
  4. VYTORIN [Concomitant]
  5. ALL OTHER THERAPEUTIC PRODUCTS [Concomitant]
     Indication: OSTEOPOROSIS

REACTIONS (3)
  - DRUG INTERACTION [None]
  - LETHARGY [None]
  - SLUGGISHNESS [None]
